FAERS Safety Report 20884746 (Version 1)
Quarter: 2022Q2

REPORT INFORMATION
  Report Type: Spontaneous
  Country: US (occurrence: US)
  Receive Date: 20220527
  Receipt Date: 20220527
  Transmission Date: 20220720
  Serious: No
  Sender: FDA-Public Use
  Company Number: US-PFIZER INC-202200757951

PATIENT
  Age: 79 Year
  Sex: Female
  Weight: 69.4 kg

DRUGS (2)
  1. GLIPIZIDE [Suspect]
     Active Substance: GLIPIZIDE
     Dosage: UNK, 2X/DAY
     Dates: end: 20220330
  2. MONTELUKAST [Suspect]
     Active Substance: MONTELUKAST SODIUM

REACTIONS (5)
  - Cognitive disorder [Unknown]
  - Feeling abnormal [Unknown]
  - Presyncope [Unknown]
  - Disorientation [Unknown]
  - Dizziness [Unknown]
